FAERS Safety Report 15797328 (Version 2)
Quarter: 2019Q1

REPORT INFORMATION
  Report Type: Spontaneous
  Country: US (occurrence: US)
  Receive Date: 20190108
  Receipt Date: 20190207
  Transmission Date: 20190417
  Serious: No
  Sender: FDA-Public Use
  Company Number: US-PFIZER INC-2019005927

PATIENT
  Age: 71 Year
  Sex: Female
  Weight: 48.98 kg

DRUGS (1)
  1. SUTENT [Suspect]
     Active Substance: SUNITINIB MALATE
     Indication: METASTATIC RENAL CELL CARCINOMA
     Dosage: 50 MG, CYCLIC (1-28 Q42 DAYS)
     Route: 048
     Dates: start: 20181223, end: 201901

REACTIONS (1)
  - Fatigue [Unknown]
